FAERS Safety Report 6541773-1 (Version None)
Quarter: 2010Q1

REPORT INFORMATION
  Report Type: 
  Country: None (occurrence: None)
  Receive Date: 20100119
  Receipt Date: 20100115
  Transmission Date: 20100710
  Serious: Yes (Life-Threatening)
  Sender: FDA-Public Use
  Company Number: FR-SANOFI-AVENTIS-2010SA002438

PATIENT
  Age: 86 Year
  Sex: Female

DRUGS (8)
  1. LOVENOX [Suspect]
     Indication: PULMONARY EMBOLISM
     Route: 051
     Dates: start: 20090606, end: 20090614
  2. PREVISCAN [Concomitant]
     Route: 048
     Dates: end: 20090605
  3. TRIMETAZIDINE [Concomitant]
     Route: 048
  4. KENZEN [Concomitant]
     Route: 048
  5. FUROSEMIDE [Concomitant]
     Route: 048
  6. CLONIDINE HCL [Concomitant]
     Route: 048
  7. PRAZOSIN HCL [Concomitant]
     Route: 048
  8. SKENAN [Concomitant]
     Route: 048

REACTIONS (4)
  - AUTOIMMUNE THROMBOCYTOPENIA [None]
  - HAEMATURIA [None]
  - MELAENA [None]
  - VASCULAR PURPURA [None]
